FAERS Safety Report 9686771 (Version 1)
Quarter: 2013Q4

REPORT INFORMATION
  Report Type: Spontaneous
  Country: US (occurrence: US)
  Receive Date: 20131113
  Receipt Date: 20131113
  Transmission Date: 20140711
  Serious: Yes (Other)
  Sender: FDA-Public Use
  Company Number: US-PFIZER INC-2013322641

PATIENT
  Age: 52 Year
  Sex: Male

DRUGS (3)
  1. ZOLOFT [Suspect]
     Dosage: 50 MG, 1X/DAY
  2. ZYRTEC [Suspect]
     Dosage: UNK
  3. NAPACIN [Concomitant]
     Dosage: UNK

REACTIONS (1)
  - Jaw fracture [Unknown]
